FAERS Safety Report 10004360 (Version 1)
Quarter: 2014Q1

REPORT INFORMATION
  Report Type: Spontaneous
  Country: GB (occurrence: GB)
  Receive Date: 20140312
  Receipt Date: 20140312
  Transmission Date: 20141002
  Serious: Yes (Hospitalization, Other)
  Sender: FDA-Public Use
  Company Number: GB-BRISTOL-MYERS SQUIBB COMPANY-20346771

PATIENT
  Age: 58 Year
  Sex: Female

DRUGS (12)
  1. ABATACEPT [Suspect]
     Indication: RHEUMATOID ARTHRITIS
     Route: 058
     Dates: start: 20140103, end: 20140214
  2. ATORVASTATIN [Concomitant]
  3. BISOPROLOL [Concomitant]
  4. CALCICHEW D3 [Concomitant]
  5. HYDROXYCHLOROQUINE [Concomitant]
  6. POLYETHYLENE GLYCOL 3350 [Concomitant]
  7. OXYCONTIN [Concomitant]
  8. OXYNORM [Concomitant]
  9. PARACETAMOL [Concomitant]
  10. PREDNISOLONE [Concomitant]
  11. RANITIDINE [Concomitant]
  12. WARFARIN [Concomitant]

REACTIONS (2)
  - Grand mal convulsion [Recovered/Resolved]
  - Postictal state [Recovered/Resolved]
